FAERS Safety Report 12696895 (Version 1)
Quarter: 2016Q3

REPORT INFORMATION
  Report Type: Spontaneous
  Country: US (occurrence: US)
  Receive Date: 20160830
  Receipt Date: 20160830
  Transmission Date: 20161109
  Serious: No
  Sender: FDA-Public Use
  Company Number: US-TEVA-588080USA

PATIENT
  Sex: Female
  Weight: 78.09 kg

DRUGS (1)
  1. LABETALOL [Suspect]
     Active Substance: LABETALOL\LABETALOL HYDROCHLORIDE
     Indication: HYPERTENSION
     Dates: start: 20150731, end: 20150807

REACTIONS (5)
  - Headache [Unknown]
  - Peripheral swelling [Unknown]
  - Asthenia [Unknown]
  - Skin discolouration [Unknown]
  - Abdominal pain [Unknown]
